FAERS Safety Report 26174363 (Version 1)
Quarter: 2025Q4

REPORT INFORMATION
  Report Type: Spontaneous
  Country: US (occurrence: US)
  Receive Date: 20251218
  Receipt Date: 20251218
  Transmission Date: 20260118
  Serious: Yes (Life-Threatening, Hospitalization, Other)
  Sender: STRIDES
  Company Number: US-STRIDES ARCOLAB LIMITED-2025SP015847

PATIENT
  Age: 60 Year
  Sex: Female

DRUGS (1)
  1. POLYETHYLENE GLYCOL 3350 [Suspect]
     Active Substance: POLYETHYLENE GLYCOL 3350
     Indication: Laxative supportive care
     Dosage: ONE BOTTLE OF ORAL POLYETHYLENE-GLYCOL
     Route: 048

REACTIONS (10)
  - Aortic valve incompetence [Unknown]
  - Hypovolaemia [Unknown]
  - Electrolyte imbalance [Unknown]
  - Acute kidney injury [Recovering/Resolving]
  - Rhabdomyolysis [Unknown]
  - Mental status changes [Recovering/Resolving]
  - Metabolic acidosis [Recovering/Resolving]
  - Diarrhoea [Unknown]
  - Intentional product misuse [Unknown]
  - Overdose [Unknown]
